FAERS Safety Report 5771881-4 (Version None)
Quarter: 2008Q2

REPORT INFORMATION
  Report Type: 
  Country: None (occurrence: None)
  Receive Date: 20080613
  Receipt Date: 20080606
  Transmission Date: 20081010
  Serious: Yes (Hospitalization, Other)
  Sender: FDA-Public Use
  Company Number: B0524015A

PATIENT
  Sex: Female

DRUGS (2)
  1. AVANDAMET [Suspect]
     Dosage: 1TAB PER DAY
     Route: 048
     Dates: start: 20070701, end: 20080201
  2. DIAMICRON [Concomitant]
     Route: 048
     Dates: end: 20080201

REACTIONS (5)
  - ANOREXIA [None]
  - COUGH [None]
  - HYPOGLYCAEMIA [None]
  - NAUSEA [None]
  - WEIGHT DECREASED [None]
